FAERS Safety Report 21671380 (Version 4)
Quarter: 2023Q1

REPORT INFORMATION
  Report Type: Spontaneous
  Country: US (occurrence: US)
  Receive Date: 20221202
  Receipt Date: 20230324
  Transmission Date: 20230417
  Serious: No
  Sender: FDA-Public Use
  Company Number: US-GBT-013963

PATIENT
  Sex: Female

DRUGS (1)
  1. OXBRYTA [Suspect]
     Active Substance: VOXELOTOR
     Indication: Sickle cell disease
     Dosage: STRENGTH: 500 MG TABLET
     Route: 048
     Dates: start: 20220616

REACTIONS (5)
  - Polymenorrhoea [Unknown]
  - Abdominal pain [Not Recovered/Not Resolved]
  - Heavy menstrual bleeding [Unknown]
  - Nausea [Recovered/Resolved]
  - Haemoglobin decreased [Unknown]

NARRATIVE: CASE EVENT DATE: 20220101
